FAERS Safety Report 13364575 (Version 1)
Quarter: 2017Q1

REPORT INFORMATION
  Report Type: Spontaneous
  Country: US (occurrence: US)
  Receive Date: 20170323
  Receipt Date: 20170323
  Transmission Date: 20170429
  Serious: No
  Sender: FDA-Public Use
  Company Number: US-ROCHE-1403295

PATIENT
  Sex: Male

DRUGS (7)
  1. PRILOSEC [Concomitant]
     Active Substance: OMEPRAZOLE MAGNESIUM
  2. SINGULAIR [Concomitant]
     Active Substance: MONTELUKAST SODIUM
  3. BACTRIM DS [Concomitant]
     Active Substance: SULFAMETHOXAZOLE\TRIMETHOPRIM
     Route: 065
  4. ADVAIR DISKUS [Concomitant]
     Active Substance: FLUTICASONE PROPIONATE\SALMETEROL XINAFOATE
  5. PREDNISONE. [Concomitant]
     Active Substance: PREDNISONE
  6. XOLAIR [Suspect]
     Active Substance: OMALIZUMAB
     Indication: ASTHMA
     Route: 058
  7. FORTEO [Concomitant]
     Active Substance: TERIPARATIDE

REACTIONS (1)
  - Rash macular [Not Recovered/Not Resolved]
